FAERS Safety Report 9642532 (Version 1)
Quarter: 2013Q4

REPORT INFORMATION
  Report Type: Spontaneous
  Country: TN (occurrence: TN)
  Receive Date: 20131024
  Receipt Date: 20131024
  Transmission Date: 20140711
  Serious: Yes (Death, Hospitalization)
  Sender: FDA-Public Use
  Company Number: TN-MYLANLABS-2013S1023189

PATIENT
  Age: 33 Year
  Sex: Male

DRUGS (2)
  1. PYRAZINAMIDE [Suspect]
     Indication: MENINGITIS TUBERCULOUS
     Route: 065
     Dates: start: 20130207
  2. OMEPRAZOLE [Suspect]
     Route: 065

REACTIONS (2)
  - Hepatitis fulminant [Fatal]
  - Pancreatitis [Not Recovered/Not Resolved]
